FAERS Safety Report 9442467 (Version 3)
Quarter: 2014Q1

REPORT INFORMATION
  Report Type: Spontaneous
  Country: US (occurrence: US)
  Receive Date: 20130806
  Receipt Date: 20140321
  Transmission Date: 20141002
  Serious: Yes (Hospitalization, Other)
  Sender: FDA-Public Use
  Company Number: US-PFIZER INC-2013227984

PATIENT
  Age: 82 Year
  Sex: Female
  Weight: 100 kg

DRUGS (5)
  1. LYRICA [Suspect]
     Indication: NEUROPATHY PERIPHERAL
     Dosage: 150 MG (3 X 50MG), AS NEEDED
     Route: 048
     Dates: start: 20110513
  2. LYRICA [Suspect]
     Indication: BURNING SENSATION
     Dosage: UNK
     Dates: start: 2012
  3. LYRICA [Suspect]
     Indication: PAIN IN EXTREMITY
  4. LYRICA [Suspect]
     Indication: NEUROPATHY PERIPHERAL
  5. REMODULIN [Concomitant]
     Indication: PULMONARY HYPERTENSION
     Dosage: UNK(3 LITERS OF  REMODULIN WITH 17 LITERS OF SALINE SOLUTION), EVERY ALTERNATE DAY

REACTIONS (8)
  - Escherichia bacteraemia [Unknown]
  - Escherichia urinary tract infection [Unknown]
  - Malaise [Unknown]
  - Pyrexia [Unknown]
  - Pre-existing condition improved [Unknown]
  - Abdominal pain [Unknown]
  - Therapeutic response unexpected [Unknown]
  - Pain [Unknown]
